FAERS Safety Report 4665092-3 (Version None)
Quarter: 2005Q2

REPORT INFORMATION
  Report Type: 
  Country: None (occurrence: None)
  Receive Date: 20050517
  Receipt Date: 20050307
  Transmission Date: 20051028
  Serious: No
  Sender: FDA-Public Use
  Company Number: S05-USA-01208-01

PATIENT
  Age: 62 Year
  Sex: Female

DRUGS (4)
  1. NAMENDA [Suspect]
     Indication: CEREBRAL DISORDER
     Dosage: 5 MG QD PO
     Route: 048
     Dates: start: 20050305
  2. NAMENDA [Suspect]
     Indication: INJURY
     Dosage: 5 MG QD PO
     Route: 048
     Dates: start: 20050305
  3. ARICEPT [Concomitant]
  4. MULTIPLE MEDICATIONS (NOS) [Concomitant]

REACTIONS (1)
  - RASH [None]
